FAERS Safety Report 7552225-4 (Version None)
Quarter: 2011Q2

REPORT INFORMATION
  Report Type: 
  Country: None (occurrence: None)
  Receive Date: 20110616
  Receipt Date: 20031120
  Transmission Date: 20111010
  Serious: Yes (Hospitalization)
  Sender: FDA-Public Use
  Company Number: PHHO2003JP15093

PATIENT
  Sex: Female
  Weight: 67 kg

DRUGS (2)
  1. CANDESARTAN CILEXETIL [Concomitant]
  2. LOCHOLEST [Suspect]
     Indication: HYPERCHOLESTEROLAEMIA
     Dosage: 30 MG, PER DAY
     Route: 048
     Dates: start: 20010420

REACTIONS (1)
  - CHOLELITHIASIS [None]
